FAERS Safety Report 15854561 (Version 2)
Quarter: 2019Q1

REPORT INFORMATION
  Report Type: Spontaneous
  Country: IT (occurrence: IT)
  Receive Date: 20190122
  Receipt Date: 20190128
  Transmission Date: 20190417
  Serious: Yes (Other)
  Sender: FDA-Public Use
  Company Number: IT-PFIZER INC-2019025186

PATIENT
  Age: 65 Year
  Sex: Male

DRUGS (9)
  1. EPIRUBICIN HCL [Suspect]
     Active Substance: EPIRUBICIN HYDROCHLORIDE
     Indication: HEPATIC NEOPLASM
     Dosage: 60 MG, CYCLIC (EPIRUBICIN- LIPIODOL MIXTURE/INJECTED/TRANSCATHETER CHEMOEMBOLIZATION)
     Route: 013
  2. LIPIODOL [Suspect]
     Active Substance: ETHIODIZED OIL
     Indication: HEPATIC NEOPLASM
     Dosage: UNK (EPIRUBICIN- LIPIODOL MIXTURE, 5-10 ML LIPIODOL ULTRAFLUID, TRANSCATHETER CHEMOEMBOLIZATION)
     Route: 013
  3. IOPAMIDOL [Suspect]
     Active Substance: IOPAMIDOL
     Indication: METASTASIS
     Dosage: UNK (2-4 ML IOPAMIDOL 300 MGI, TRANSCATHETER CHEMOEMBOLIZATION)
     Route: 013
  4. GELFOAM [Suspect]
     Active Substance: GELATIN\THROMBIN HUMAN
     Indication: METASTASIS
  5. MITOMICINA C [Suspect]
     Active Substance: MITOMYCIN
     Indication: METASTASIS
     Dosage: 10 MG, CYCLIC (INJECTED USING THE GENERALLY RECOMMENDED DILUTION FOR ENDOVASCULAR INFUSION, TACE)
     Route: 013
  6. GELFOAM [Suspect]
     Active Substance: GELATIN\THROMBIN HUMAN
     Indication: EMBOLISM
  7. LIPIODOL [Suspect]
     Active Substance: ETHIODIZED OIL
     Indication: METASTASIS
  8. EPIRUBICIN HCL [Suspect]
     Active Substance: EPIRUBICIN HYDROCHLORIDE
     Indication: METASTASIS
  9. GELFOAM [Suspect]
     Active Substance: GELATIN\THROMBIN HUMAN
     Indication: HEPATIC NEOPLASM
     Dosage: UNK (SPONGE INJECTION, TRANSCATHETER CHEMOEMBOLIZATION)
     Route: 013

REACTIONS (3)
  - Thrombosis [Unknown]
  - Hepatic artery stenosis [Unknown]
  - Hepatic artery occlusion [Unknown]
